FAERS Safety Report 13235044 (Version 2)
Quarter: 2017Q1

REPORT INFORMATION
  Report Type: Report from Study
  Country: CA (occurrence: CA)
  Receive Date: 20170215
  Receipt Date: 20170227
  Transmission Date: 20170428
  Serious: Yes (Other)
  Sender: FDA-Public Use
  Company Number: PHHY2014CA067793

PATIENT
  Age: 93 Year
  Sex: Female

DRUGS (14)
  1. ADALAT CC [Concomitant]
     Active Substance: NIFEDIPINE
     Indication: PRODUCT USED FOR UNKNOWN INDICATION
     Dosage: 20 MG, QD
     Route: 065
  2. SANDOSTATIN LAR DEPOT [Suspect]
     Active Substance: OCTREOTIDE ACETATE
     Dosage: 40 MG, QMO (EVERY 4 WEEKS)
     Route: 030
     Dates: start: 20160309
  3. IMDUR [Concomitant]
     Active Substance: ISOSORBIDE MONONITRATE
     Indication: PRODUCT USED FOR UNKNOWN INDICATION
     Dosage: 60 MG, QD
     Route: 065
  4. SANDOSTATIN LAR DEPOT [Suspect]
     Active Substance: OCTREOTIDE ACETATE
     Dosage: 30 MG, QMO (ONCE A MONTH)
     Route: 030
  5. ALTACE [Concomitant]
     Active Substance: RAMIPRIL
     Indication: PRODUCT USED FOR UNKNOWN INDICATION
     Dosage: 5 MG, QD
     Route: 065
  6. D TABS [Concomitant]
     Indication: PRODUCT USED FOR UNKNOWN INDICATION
     Dosage: 10000 IU, QW
     Route: 065
  7. GLUCONORM [Concomitant]
     Active Substance: REPAGLINIDE
     Indication: PRODUCT USED FOR UNKNOWN INDICATION
     Dosage: 1 MG, TID
     Route: 065
  8. SANDOSTATIN LAR DEPOT [Suspect]
     Active Substance: OCTREOTIDE ACETATE
     Indication: METASTASES TO LIVER
     Dosage: 30 MG, QMO (EVERY 4 WEEKS)
     Route: 030
     Dates: start: 20140430
  9. SANDOSTATIN LAR DEPOT [Suspect]
     Active Substance: OCTREOTIDE ACETATE
     Dosage: 30 MG, QMO (EVERY 4 WEEKS)
     Route: 030
     Dates: start: 201601
  10. PANTOLOC [Concomitant]
     Active Substance: PANTOPRAZOLE SODIUM
     Indication: PRODUCT USED FOR UNKNOWN INDICATION
     Dosage: 40 MG, QD
     Route: 065
  11. SANDOSTATIN LAR DEPOT [Suspect]
     Active Substance: OCTREOTIDE ACETATE
     Dosage: 10 MG, (10 MG GIVEN TO COMPLETE 40 MG PRESCRIPTION)
     Route: 030
     Dates: start: 20141217
  12. SANDOSTATIN LAR DEPOT [Suspect]
     Active Substance: OCTREOTIDE ACETATE
     Dosage: 40 MG, QMO (EVERY 4 WEEKS )
     Route: 030
     Dates: start: 2015
  13. SANDOSTATIN LAR DEPOT [Suspect]
     Active Substance: OCTREOTIDE ACETATE
     Dosage: 30 MG, QMO (EVERY 4 WEEKS)
     Route: 030
     Dates: start: 20141211
  14. ASAPHEN [Concomitant]
     Active Substance: ASPIRIN
     Indication: PRODUCT USED FOR UNKNOWN INDICATION
     Dosage: 80 MG, QD
     Route: 065

REACTIONS (35)
  - Neoplasm malignant [Unknown]
  - Viral infection [Unknown]
  - Pain in extremity [Recovered/Resolved]
  - Fatigue [Unknown]
  - Cough [Unknown]
  - Injection site pain [Unknown]
  - Pruritus [Unknown]
  - Pain in extremity [Unknown]
  - Dizziness [Unknown]
  - Injection site mass [Unknown]
  - Headache [Unknown]
  - Asthenia [Unknown]
  - Haemoglobin decreased [Unknown]
  - Nightmare [Unknown]
  - Needle issue [Unknown]
  - Product use issue [Unknown]
  - Oedema peripheral [Recovered/Resolved]
  - Paraesthesia [Recovered/Resolved]
  - Nervousness [Unknown]
  - Anxiety [Unknown]
  - Screaming [Unknown]
  - Myalgia [Unknown]
  - Fall [Unknown]
  - Diarrhoea [Unknown]
  - Blood pressure systolic increased [Unknown]
  - Cardiac discomfort [Unknown]
  - Chest pain [Recovered/Resolved]
  - Nail infection [Unknown]
  - Blood pressure diastolic decreased [Unknown]
  - Depression [Unknown]
  - Rash macular [Unknown]
  - Nausea [Unknown]
  - Decreased appetite [Unknown]
  - Gait disturbance [Unknown]
  - Blood glucose increased [Unknown]

NARRATIVE: CASE EVENT DATE: 20140527
